FAERS Safety Report 11135538 (Version 1)
Quarter: 2015Q2

REPORT INFORMATION
  Report Type: Spontaneous
  Country: US (occurrence: None)
  Receive Date: 20150522
  Receipt Date: 20150522
  Transmission Date: 20150821
  Serious: No
  Sender: FDA-Public Use
  Company Number: None

PATIENT
  Age: 56 Year

DRUGS (1)
  1. TECFIDERA [Suspect]
     Active Substance: DIMETHYL FUMARATE
     Indication: MULTIPLE SCLEROSIS
     Route: 048
     Dates: start: 20140501, end: 20150520

REACTIONS (4)
  - Dyspepsia [None]
  - Skin burning sensation [None]
  - White blood cell count decreased [None]
  - Blood iron decreased [None]

NARRATIVE: CASE EVENT DATE: 20150520
